FAERS Safety Report 9050009 (Version 1)
Quarter: 2013Q1

REPORT INFORMATION
  Report Type: Spontaneous
  Country: US (occurrence: US)
  Receive Date: 20130205
  Receipt Date: 20130205
  Transmission Date: 20140127
  Serious: No
  Sender: FDA-Public Use
  Company Number: US-GLAXOSMITHKLINE-A0969740A

PATIENT
  Age: 58 Year
  Sex: Male

DRUGS (7)
  1. ARIXTRA [Suspect]
     Indication: THROMBOSIS
     Dosage: 7.5MG PER DAY
     Route: 058
     Dates: start: 20120213
  2. FONDAPARINUX SODIUM [Suspect]
     Indication: THROMBOSIS
     Dosage: 5MG PER DAY
     Route: 058
  3. SOTALOL [Concomitant]
  4. CARVEDILOL [Concomitant]
  5. QUINAPRIL [Concomitant]
  6. LANTUS [Concomitant]
  7. VITAMINS [Concomitant]

REACTIONS (5)
  - Haemoptysis [Not Recovered/Not Resolved]
  - Injection site bruising [Unknown]
  - Application site nodule [Unknown]
  - Dyspnoea [Unknown]
  - Insomnia [Unknown]
